FAERS Safety Report 23321904 (Version 1)
Quarter: 2023Q4

REPORT INFORMATION
  Report Type: Spontaneous
  Country: US (occurrence: None)
  Receive Date: 20231220
  Receipt Date: 20231220
  Transmission Date: 20240110
  Serious: Yes (Other)
  Sender: FDA-Public Use
  Company Number: None

PATIENT
  Age: 32 Year
  Sex: Male
  Weight: 76.95 kg

DRUGS (5)
  1. QELBREE [Suspect]
     Active Substance: VILOXAZINE HYDROCHLORIDE
     Indication: Attention deficit hyperactivity disorder
     Dates: start: 20231121, end: 20231128
  2. ARIMIDEX [Concomitant]
     Active Substance: ANASTROZOLE
     Dates: start: 20230301
  3. CLOMID [Concomitant]
     Active Substance: CLOMIPHENE CITRATE
     Dates: start: 20230301
  4. tirzapetide compounded [Concomitant]
     Dates: start: 20230701
  5. ZYRTEC [Concomitant]
     Active Substance: CETIRIZINE HYDROCHLORIDE
     Dates: start: 20221201

REACTIONS (2)
  - Pollakiuria [None]
  - Urinary incontinence [None]

NARRATIVE: CASE EVENT DATE: 20231128
